FAERS Safety Report 9285957 (Version 1)
Quarter: 2013Q2

REPORT INFORMATION
  Report Type: Spontaneous
  Country: IT (occurrence: IT)
  Receive Date: 20130513
  Receipt Date: 20130513
  Transmission Date: 20140414
  Serious: Yes (Other)
  Sender: FDA-Public Use
  Company Number: IT-PFIZER INC-2013144616

PATIENT
  Age: 54 Year
  Sex: Female

DRUGS (4)
  1. ZOLOFT [Suspect]
     Indication: DEPRESSION
     Dosage: UNK
     Dates: start: 2003
  2. TAVOR [Concomitant]
  3. DEPAKIN [Concomitant]
  4. EUTIROX [Concomitant]

REACTIONS (5)
  - Dissociation [Unknown]
  - Confusional state [Unknown]
  - Bulimia nervosa [Not Recovered/Not Resolved]
  - Weight increased [Not Recovered/Not Resolved]
  - Menopause [Not Recovered/Not Resolved]
